FAERS Safety Report 10177761 (Version 1)
Quarter: 2014Q2

REPORT INFORMATION
  Report Type: Spontaneous
  Country: US (occurrence: US)
  Receive Date: 20140516
  Receipt Date: 20140516
  Transmission Date: 20141212
  Serious: No
  Sender: FDA-Public Use
  Company Number: US-SANOFI-AVENTIS-2013SA065651

PATIENT
  Age: 55 Year
  Sex: Female
  Weight: 102.27 kg

DRUGS (14)
  1. APIDRA [Suspect]
     Dosage: FREQUENCY: USE AS DIRECTED.
     Route: 065
  2. LANTUS SOLOSTAR [Suspect]
     Dosage: DOSE 30 UNITS IN AM, 35 UNITS IN PM
     Route: 058
  3. SOLOSTAR [Suspect]
  4. HUMALOG [Concomitant]
     Dosage: USE AS DIRECTED DOSE:10 UNIT(S)
  5. ADVAIR DISKUS [Concomitant]
     Dosage: INHALE 1 PUFF
     Route: 065
  6. CLONIDINE HYDROCHLORIDE [Concomitant]
     Dosage: 1 TABLET TWICE DAILY
     Route: 065
  7. DILTIAZEM HYDROCHLORIDE [Concomitant]
     Route: 048
  8. LISINOPRIL [Concomitant]
     Dosage: 1 TABLET DAILY
     Route: 065
  9. METFORMIN HYDROCHLORIDE [Concomitant]
     Dosage: 1 TABLET TWICE DAILY
     Route: 065
  10. NOVOLIN [Concomitant]
     Dosage: USE AS DIRECTED
  11. NOVOLOG MIX [Concomitant]
     Dosage: USE AS DIRECTED
  12. SIMVASTATIN [Concomitant]
     Dosage: 1 TABLET DAILY
     Route: 048
  13. SYMBICORT [Concomitant]
  14. HYDROCHLOROTHIAZIDE WITH TRIAMTERENE [Concomitant]
     Dosage: ONE CAPSULE EVERY DAY
     Route: 065

REACTIONS (7)
  - Oedema peripheral [Not Recovered/Not Resolved]
  - Fatigue [Recovered/Resolved]
  - Face oedema [Recovering/Resolving]
  - Anxiety [Unknown]
  - Weight increased [Not Recovered/Not Resolved]
  - Depression [Unknown]
  - Mood altered [Unknown]
